FAERS Safety Report 6470383-X (Version None)
Quarter: 2009Q4

REPORT INFORMATION
  Report Type: 
  Country: None (occurrence: None)
  Receive Date: 20091203
  Receipt Date: 20091123
  Transmission Date: 20100525
  Serious: Yes (Other)
  Sender: FDA-Public Use
  Company Number: TR-PFIZER INC-2009301527

PATIENT
  Age: 57 Year
  Sex: Male

DRUGS (1)
  1. SUNITINIB MALATE [Suspect]
     Indication: METASTATIC RENAL CELL CARCINOMA
     Dosage: 50 MG, 1X/DAY
     Dates: start: 20071001

REACTIONS (4)
  - HYPERTENSION [None]
  - IMMUNE SYSTEM DISORDER [None]
  - STOMATITIS [None]
  - THYROID DISORDER [None]
